FAERS Safety Report 8202569-8 (Version None)
Quarter: 2012Q1

REPORT INFORMATION
  Report Type: 
  Country: None (occurrence: None)
  Receive Date: 20120312
  Receipt Date: 20120305
  Transmission Date: 20120608
  Serious: Yes (Hospitalization)
  Sender: FDA-Public Use
  Company Number: PHHY2012IT019295

PATIENT
  Sex: Male

DRUGS (1)
  1. AMOXICILLIN [Suspect]
     Indication: PYREXIA
     Dosage: 0.6 ML/KG OF BODY WEIGHT
     Route: 048
     Dates: start: 20120219, end: 20120221

REACTIONS (1)
  - NEUTROPENIA [None]
